FAERS Safety Report 9602485 (Version 7)
Quarter: 2014Q2

REPORT INFORMATION
  Report Type: Report from Study
  Country: US (occurrence: US)
  Receive Date: 20131007
  Receipt Date: 20140616
  Transmission Date: 20141212
  Serious: Yes (Hospitalization)
  Sender: FDA-Public Use
  Company Number: US-JNJFOC-20131000465

PATIENT
  Age: 18 Year
  Sex: Female
  Weight: 95.5 kg

DRUGS (3)
  1. REMICADE [Suspect]
     Indication: INFLAMMATORY BOWEL DISEASE
     Route: 042
     Dates: start: 20130904
  2. REMICADE [Suspect]
     Indication: INFLAMMATORY BOWEL DISEASE
     Dosage: LAST DOSE IN JUN (YEAR UNSPECIFIED)
     Route: 042
     Dates: start: 20090904, end: 20130626
  3. BACTROBAN [Concomitant]
     Route: 065

REACTIONS (1)
  - Enteritis [Recovered/Resolved with Sequelae]
